FAERS Safety Report 6423971-0 (Version None)
Quarter: 2009Q4

REPORT INFORMATION
  Report Type: 
  Country: None (occurrence: None)
  Receive Date: 20091102
  Receipt Date: 20091026
  Transmission Date: 20100525
  Serious: Yes (Other)
  Sender: FDA-Public Use
  Company Number: PHHY2009DE46793

PATIENT
  Sex: Male

DRUGS (1)
  1. AFINITOR [Suspect]
     Dosage: UNK
     Dates: start: 20090911, end: 20091002

REACTIONS (3)
  - CIRCULATORY COLLAPSE [None]
  - HYPERTENSION [None]
  - RENAL FAILURE [None]
